FAERS Safety Report 9897874 (Version 1)
Quarter: 2014Q1

REPORT INFORMATION
  Report Type: Spontaneous
  Country: US (occurrence: US)
  Receive Date: 20140214
  Receipt Date: 20140214
  Transmission Date: 20141002
  Serious: No
  Sender: FDA-Public Use
  Company Number: US-PFIZER INC-2014039705

PATIENT
  Sex: Female

DRUGS (1)
  1. EXEMESTANE [Suspect]
     Dosage: UNK

REACTIONS (1)
  - Pruritus [Unknown]
